FAERS Safety Report 8063659-6 (Version None)
Quarter: 2012Q1

REPORT INFORMATION
  Report Type: 
  Country: None (occurrence: None)
  Receive Date: 20120123
  Receipt Date: 20120112
  Transmission Date: 20120608
  Serious: Yes (Hospitalization)
  Sender: FDA-Public Use
  Company Number: US-BAYER-2011-073164

PATIENT
  Age: 46 Year
  Sex: Female
  Weight: 98 kg

DRUGS (1)
  1. YAZ [Suspect]
     Indication: ACNE
     Dosage: UNK
     Dates: start: 20090401, end: 20090801

REACTIONS (4)
  - HOT FLUSH [None]
  - DEPRESSION [None]
  - PAIN [None]
  - DEEP VEIN THROMBOSIS [None]
